FAERS Safety Report 5488583-4 (Version None)
Quarter: 2007Q4

REPORT INFORMATION
  Report Type: 
  Country: None (occurrence: None)
  Receive Date: 20071017
  Receipt Date: 20070319
  Transmission Date: 20080405
  Serious: No
  Sender: FDA-Public Use
  Company Number: A0643676A

PATIENT
  Sex: Female

DRUGS (2)
  1. CEFTIN [Suspect]
     Dosage: 500MG UNKNOWN
     Route: 048
  2. SYNTHROID [Concomitant]

REACTIONS (1)
  - DRUG INEFFECTIVE [None]
